FAERS Safety Report 6693909-X (Version None)
Quarter: 2010Q2

REPORT INFORMATION
  Report Type: 
  Country: None (occurrence: None)
  Receive Date: 20100423
  Receipt Date: 20100413
  Transmission Date: 20101027
  Serious: Yes (Hospitalization)
  Sender: FDA-Public Use
  Company Number: US-JNJCH-2009031674

PATIENT
  Age: 5 Year
  Weight: 18 kg

DRUGS (1)
  1. ASPIRIN [Suspect]
     Indication: TONSILLECTOMY
     Dosage: TEXT:0.09 GM/KG FOR 5 DAY; 0.22 GM/KG X 1 DAY
     Route: 048

REACTIONS (2)
  - THERAPEUTIC AGENT TOXICITY [None]
  - WRONG DRUG ADMINISTERED [None]
